FAERS Safety Report 25617394 (Version 1)
Quarter: 2025Q3

REPORT INFORMATION
  Report Type: Spontaneous
  Country: EU (occurrence: EU)
  Receive Date: 20250729
  Receipt Date: 20250729
  Transmission Date: 20251020
  Serious: Yes (Hospitalization, Disabling, Other)
  Sender: INSUD PHARMA
  Company Number: EU-MYLANLABS-2024M1071483

PATIENT
  Age: 47 Year
  Sex: Female

DRUGS (2)
  1. NOMEGESTROL [Suspect]
     Active Substance: NOMEGESTROL
     Indication: Product used for unknown indication
     Dates: start: 20110620, end: 20120210
  2. NOMEGESTROL ACETATE [Suspect]
     Active Substance: NOMEGESTROL ACETATE
     Indication: Product used for unknown indication
     Dates: start: 20120210

REACTIONS (11)
  - Meningioma [Unknown]
  - Brain oedema [Unknown]
  - Behaviour disorder [Unknown]
  - Cognitive disorder [Unknown]
  - Executive dysfunction [Unknown]
  - Mood altered [Unknown]
  - Memory impairment [Unknown]
  - Vertigo [Unknown]
  - Headache [Unknown]
  - Anxiety [Unknown]
  - Dizziness [Unknown]

NARRATIVE: CASE EVENT DATE: 20191001
